FAERS Safety Report 18897818 (Version 2)
Quarter: 2021Q2

REPORT INFORMATION
  Report Type: Spontaneous
  Country: CA (occurrence: CA)
  Receive Date: 20210216
  Receipt Date: 20210531
  Transmission Date: 20210717
  Serious: Yes (Other)
  Sender: FDA-Public Use
  Company Number: CA-DRREDDYS-USA/CAN/21/0131893

PATIENT
  Age: 69 Year
  Sex: Male

DRUGS (25)
  1. AMITRIPTYLINE [Suspect]
     Active Substance: AMITRIPTYLINE
     Indication: PRODUCT USED FOR UNKNOWN INDICATION
  2. MOMETASONE FUROATE. [Suspect]
     Active Substance: MOMETASONE FUROATE
     Indication: PRODUCT USED FOR UNKNOWN INDICATION
  3. CEPHALEXIN MONOHYDRATE. [Concomitant]
     Active Substance: CEPHALEXIN MONOHYDRATE
     Indication: PRODUCT USED FOR UNKNOWN INDICATION
  4. ATORVASTATIN [Suspect]
     Active Substance: ATORVASTATIN
     Indication: MIGRAINE
  5. SULFASALAZINE. [Suspect]
     Active Substance: SULFASALAZINE
     Indication: MIGRAINE
     Route: 065
  6. CIPRO [Suspect]
     Active Substance: CIPROFLOXACIN HYDROCHLORIDE
     Indication: MIGRAINE
     Route: 065
  7. DOCUSATE [Suspect]
     Active Substance: DOCUSATE
     Indication: MIGRAINE
  8. DOCUSATE [Suspect]
     Active Substance: DOCUSATE
     Route: 065
  9. MOMETASONE FUROATE. [Suspect]
     Active Substance: MOMETASONE FUROATE
     Route: 045
  10. MOMETASONE FUROATE. [Suspect]
     Active Substance: MOMETASONE FUROATE
     Route: 045
  11. RABEPRAZOLE SODIUM. [Suspect]
     Active Substance: RABEPRAZOLE SODIUM
     Indication: MIGRAINE
     Route: 065
  12. ATORVASTATIN [Suspect]
     Active Substance: ATORVASTATIN
     Route: 048
  13. MORPHINE [Suspect]
     Active Substance: MORPHINE
     Indication: MIGRAINE
     Route: 065
  14. PREDNISONE. [Concomitant]
     Active Substance: PREDNISONE
     Route: 065
  15. CARBAMAZEPINE. [Suspect]
     Active Substance: CARBAMAZEPINE
  16. MORPHINE [Suspect]
     Active Substance: MORPHINE
     Route: 065
  17. PREGABALIN. [Suspect]
     Active Substance: PREGABALIN
     Indication: MIGRAINE
     Route: 065
  18. ULTIBRO BREEZHALER [Suspect]
     Active Substance: GLYCOPYRRONIUM\INDACATEROL
     Indication: MIGRAINE
  19. MOXIFLOXACIN HYDROCHLORIDE. [Concomitant]
     Active Substance: MOXIFLOXACIN HYDROCHLORIDE
     Indication: PRODUCT USED FOR UNKNOWN INDICATION
     Route: 065
  20. PREDNISONE. [Concomitant]
     Active Substance: PREDNISONE
     Indication: PRODUCT USED FOR UNKNOWN INDICATION
     Route: 065
  21. CARBAMAZEPINE. [Suspect]
     Active Substance: CARBAMAZEPINE
     Indication: MIGRAINE
  22. BIAXIN [Concomitant]
     Active Substance: CLARITHROMYCIN
     Indication: PRODUCT USED FOR UNKNOWN INDICATION
  23. AMITRIPTYLINE [Suspect]
     Active Substance: AMITRIPTYLINE
  24. BISACODYL. [Suspect]
     Active Substance: BISACODYL
     Indication: PRODUCT USED FOR UNKNOWN INDICATION
  25. CEPHALEXIN MONOHYDRATE. [Concomitant]
     Active Substance: CEPHALEXIN MONOHYDRATE
     Indication: PRODUCT USED FOR UNKNOWN INDICATION

REACTIONS (14)
  - Clumsiness [Unknown]
  - Dyskinesia [Unknown]
  - Limb injury [Unknown]
  - Speech disorder [Unknown]
  - Drug intolerance [Unknown]
  - Dysarthria [Unknown]
  - Oedema [Unknown]
  - Respiration abnormal [Unknown]
  - Asthma [Unknown]
  - Sitting disability [Unknown]
  - Dizziness [Unknown]
  - Pain [Unknown]
  - Product use in unapproved indication [Unknown]
  - Off label use [Unknown]
